FAERS Safety Report 9055280 (Version 1)
Quarter: 2013Q1

REPORT INFORMATION
  Report Type: Spontaneous
  Country: US (occurrence: US)
  Receive Date: 20130205
  Receipt Date: 20130205
  Transmission Date: 20140127
  Serious: Yes (Other)
  Sender: FDA-Public Use
  Company Number: US-ELI_LILLY_AND_COMPANY-US201301009504

PATIENT
  Sex: Female

DRUGS (3)
  1. BYETTA [Suspect]
     Dosage: 5 UG, UNK
     Route: 058
  2. BYETTA [Suspect]
     Dosage: 10 UG, UNK
     Route: 058
  3. BYETTA [Suspect]
     Dosage: 5 UG, UNK
     Route: 058

REACTIONS (3)
  - Loss of consciousness [Recovered/Resolved]
  - Injection site haemorrhage [Recovered/Resolved]
  - Blood glucose decreased [Unknown]
